FAERS Safety Report 6638806-0 (Version None)
Quarter: 2010Q1

REPORT INFORMATION
  Report Type: 
  Country: None (occurrence: None)
  Receive Date: 20100317
  Receipt Date: 20091001
  Transmission Date: 20100710
  Serious: Yes (Other)
  Sender: FDA-Public Use
  Company Number: BR-PFIZER INC-2009301468

PATIENT
  Age: 23 Year
  Sex: Male
  Weight: 30 kg

DRUGS (5)
  1. EPELIN [Suspect]
     Indication: CONVULSION
     Dosage: 70 MG, 2X/DAY
     Route: 048
     Dates: start: 19870201
  2. CLONAZEPAM [Concomitant]
     Dosage: UNK
  3. PRIMIDONE [Concomitant]
     Dosage: UNK
  4. HIDANTAL [Concomitant]
     Dosage: UNK
  5. PHENYTOIN [Concomitant]
     Dosage: UNK

REACTIONS (4)
  - CONVULSION [None]
  - OEDEMA MOUTH [None]
  - RESPIRATORY ARREST [None]
  - TOOTH MALFORMATION [None]
